FAERS Safety Report 8581468-6 (Version None)
Quarter: 2012Q3

REPORT INFORMATION
  Report Type: 
  Country: None (occurrence: None)
  Receive Date: 20120809
  Receipt Date: 20120801
  Transmission Date: 20120928
  Serious: Yes (Other)
  Sender: FDA-Public Use
  Company Number: CA-PFIZER INC-2012185575

PATIENT
  Age: 29 Year
  Sex: Male

DRUGS (1)
  1. IBUPROFEN [Suspect]
     Indication: OROPHARYNGEAL PAIN
     Route: 065

REACTIONS (7)
  - STEVENS-JOHNSON SYNDROME [None]
  - SKIN EROSION [None]
  - RASH [None]
  - ERYTHEMA [None]
  - PEMPHIGUS [None]
  - URTICARIA [None]
  - BLISTER [None]
